FAERS Safety Report 5974097-1 (Version None)
Quarter: 2008Q4

REPORT INFORMATION
  Report Type: 
  Country: None (occurrence: None)
  Receive Date: 20081201
  Receipt Date: 20080905
  Transmission Date: 20090506
  Serious: No
  Sender: FDA-Public Use
  Company Number: US-AMGEN-KDL302218

PATIENT
  Sex: Male
  Weight: 93.1 kg

DRUGS (2)
  1. ENBREL [Suspect]
     Indication: PSORIASIS
     Route: 058
     Dates: start: 20080715, end: 20080811
  2. TEMOVATE [Concomitant]
     Route: 061
     Dates: start: 20080811

REACTIONS (8)
  - ERYTHEMA [None]
  - INJECTION SITE ERYTHEMA [None]
  - INJECTION SITE INDURATION [None]
  - INJECTION SITE REACTION [None]
  - LYMPHADENOPATHY [None]
  - LYMPHOCYTIC INFILTRATION [None]
  - PAIN OF SKIN [None]
  - SKIN IRRITATION [None]
